FAERS Safety Report 22917600 (Version 2)
Quarter: 2023Q4

REPORT INFORMATION
  Report Type: Spontaneous
  Country: JP (occurrence: None)
  Receive Date: 20230907
  Receipt Date: 20231005
  Transmission Date: 20240109
  Serious: Yes (Hospitalization, Other)
  Sender: FDA-Public Use
  Company Number: 2023A197936

PATIENT
  Age: 68 Year
  Sex: Male

DRUGS (4)
  1. DURVALUMAB [Suspect]
     Active Substance: DURVALUMAB
     Indication: Small cell lung cancer
     Dosage: 1,500 MG/DAY
     Route: 041
  2. DURVALUMAB [Suspect]
     Active Substance: DURVALUMAB
     Indication: Small cell lung cancer
     Dosage: AFTER RESUMING DURVALUMAB 1,500 MG/DAY
     Route: 041
  3. CARBOPLATIN [Concomitant]
     Active Substance: CARBOPLATIN
     Dosage: 345 MG/DAY
  4. ETOPOSIDE [Concomitant]
     Active Substance: ETOPOSIDE
     Dosage: 133 MG/DAY)

REACTIONS (1)
  - Paraneoplastic neurological syndrome [Recovering/Resolving]
